FAERS Safety Report 12986701 (Version 2)
Quarter: 2016Q4

REPORT INFORMATION
  Report Type: Spontaneous
  Country: AR (occurrence: AR)
  Receive Date: 20161130
  Receipt Date: 20161221
  Transmission Date: 20170207
  Serious: Yes (Other)
  Sender: FDA-Public Use
  Company Number: AR-PFIZER INC-2016551139

PATIENT
  Age: 70 Year
  Sex: Male

DRUGS (1)
  1. SUTENT [Suspect]
     Active Substance: SUNITINIB MALATE
     Indication: METASTATIC RENAL CELL CARCINOMA
     Dosage: 50 MG, DAILY
     Dates: start: 20161018, end: 2016

REACTIONS (9)
  - Stomatitis [Unknown]
  - Azotaemia [Unknown]
  - Genital lesion [Unknown]
  - Throat lesion [Not Recovered/Not Resolved]
  - Dysuria [Unknown]
  - Platelet count decreased [Unknown]
  - Skin lesion [Unknown]
  - Anaemia [Not Recovered/Not Resolved]
  - Eating disorder [Unknown]

NARRATIVE: CASE EVENT DATE: 201610
